FAERS Safety Report 17066097 (Version 1)
Quarter: 2019Q4

REPORT INFORMATION
  Report Type: Spontaneous
  Country: FR (occurrence: FR)
  Receive Date: 20191122
  Receipt Date: 20191122
  Transmission Date: 20200122
  Serious: Yes (Hospitalization)
  Sender: FDA-Public Use
  Company Number: FR-JNJFOC-20191122318

PATIENT
  Age: 61 Year
  Sex: Female

DRUGS (1)
  1. EPITOMAX [Suspect]
     Active Substance: TOPIRAMATE
     Indication: MIGRAINE PROPHYLAXIS
     Route: 048

REACTIONS (2)
  - Hospitalisation [Unknown]
  - Therapeutic response decreased [Unknown]
